FAERS Safety Report 6860123-4 (Version None)
Quarter: 2010Q3

REPORT INFORMATION
  Report Type: 
  Country: None (occurrence: None)
  Receive Date: 20100720
  Receipt Date: 20100706
  Transmission Date: 20110219
  Serious: Yes (Other)
  Sender: FDA-Public Use
  Company Number: US-ELI_LILLY_AND_COMPANY-US201001004395

PATIENT
  Sex: Female

DRUGS (8)
  1. FORTEO [Suspect]
     Indication: OSTEOPOROSIS
     Dosage: 20 UG, DAILY (1/D)
  2. FORTEO [Suspect]
     Dosage: 20 UG, DAILY (1/D)
  3. FORTEO [Suspect]
     Dosage: 20 UG, DAILY (1/D)
  4. DIOVAN [Concomitant]
     Indication: BLOOD PRESSURE
  5. METOPROLOL [Concomitant]
     Indication: BLOOD PRESSURE ABNORMAL
  6. LISINOPRIL [Concomitant]
     Indication: BLOOD PRESSURE ABNORMAL
  7. CARVEDILOL [Concomitant]
     Indication: BLOOD PRESSURE ABNORMAL
  8. CYMBALTA [Concomitant]

REACTIONS (12)
  - AMNESIA [None]
  - DEMENTIA ALZHEIMER'S TYPE [None]
  - DEPRESSED LEVEL OF CONSCIOUSNESS [None]
  - DISORIENTATION [None]
  - DIZZINESS [None]
  - DRUG DOSE OMISSION [None]
  - FALL [None]
  - HEAD INJURY [None]
  - NERVOUSNESS [None]
  - SKIN INJURY [None]
  - SKIN LACERATION [None]
  - SPINAL DEFORMITY [None]
